FAERS Safety Report 8259160-7 (Version None)
Quarter: 2012Q2

REPORT INFORMATION
  Report Type: 
  Country: None (occurrence: None)
  Receive Date: 20120404
  Receipt Date: 20120328
  Transmission Date: 20120825
  Serious: Yes (Hospitalization, Other)
  Sender: FDA-Public Use
  Company Number: US-SANOFI-AVENTIS-2012SA021794

PATIENT
  Age: 57 Year
  Sex: Female

DRUGS (2)
  1. LOVENOX [Suspect]
     Dates: start: 20050101, end: 20110701
  2. LOVENOX [Suspect]
     Dates: start: 20110701, end: 20120208

REACTIONS (10)
  - MUSCULAR WEAKNESS [None]
  - ENDOCARDITIS BACTERIAL [None]
  - ANAEMIA [None]
  - OEDEMA PERIPHERAL [None]
  - HAEMATOMA [None]
  - HAEMORRHAGE [None]
  - PLATELET COUNT DECREASED [None]
  - CONFUSIONAL STATE [None]
  - PARAESTHESIA [None]
  - MEMORY IMPAIRMENT [None]
